FAERS Safety Report 7357447-3 (Version None)
Quarter: 2011Q1

REPORT INFORMATION
  Report Type: 
  Country: None (occurrence: None)
  Receive Date: 20110317
  Receipt Date: 20110121
  Transmission Date: 20110831
  Serious: Yes (Hospitalization, Other)
  Sender: FDA-Public Use
  Company Number: US-BAYER-2011-023000

PATIENT
  Sex: Female

DRUGS (5)
  1. YAZ [Suspect]
     Indication: CONTRACEPTION
     Dosage: OTHER, SPECIFY: SAMPLE +#8220;3+#8221; (NUMBER NOT CLARIFIED)
     Dates: start: 20081201, end: 20090801
  2. IBUPROFEN [Concomitant]
  3. YASMIN [Suspect]
     Indication: CONTRACEPTION
     Dosage: OTHER, SPECIFY: SAMPLE +#8220;3+#8221; (NUMBER NOT CLARIFIED)
     Dates: start: 20081201, end: 20090801
  4. ASCORBIC ACID [Concomitant]
  5. FISH OIL [Concomitant]

REACTIONS (9)
  - LIBIDO DECREASED [None]
  - BOWEL MOVEMENT IRREGULARITY [None]
  - URINARY TRACT INFECTION [None]
  - BILIARY COLIC [None]
  - ARRHYTHMIA [None]
  - OLIGOMENORRHOEA [None]
  - CHOLELITHIASIS [None]
  - MENSTRUATION IRREGULAR [None]
  - FOOD INTOLERANCE [None]
